FAERS Safety Report 17419041 (Version 1)
Quarter: 2020Q1

REPORT INFORMATION
  Report Type: Spontaneous
  Country: FR (occurrence: FR)
  Receive Date: 20200214
  Receipt Date: 20200214
  Transmission Date: 20200409
  Serious: Yes (Other)
  Sender: FDA-Public Use
  Company Number: FR-ASTRAZENECA-2020SE20808

PATIENT
  Age: 26239 Day
  Sex: Female

DRUGS (2)
  1. FASLODEX [Suspect]
     Active Substance: FULVESTRANT
     Indication: NEOPLASM MALIGNANT
     Dosage: 250.0MG UNKNOWN
     Route: 030
     Dates: start: 20200120
  2. EVEROLIMUS. [Concomitant]
     Active Substance: EVEROLIMUS

REACTIONS (4)
  - Inappropriate schedule of product administration [Unknown]
  - Platelet count decreased [Unknown]
  - Product storage error [Unknown]
  - Product use issue [Unknown]

NARRATIVE: CASE EVENT DATE: 20200120
